FAERS Safety Report 8809732 (Version 1)
Quarter: 2012Q4

REPORT INFORMATION
  Report Type: 
  Country: US (occurrence: US)
  Receive Date: 20120926
  Receipt Date: 20120926
  Transmission Date: 20130627
  Serious: Yes (Death)
  Sender: FDA-Public Use
  Company Number: US-ROCHE-1127072

PATIENT
  Age: 71 Year
  Sex: Male

DRUGS (1)
  1. AVASTIN [Suspect]
     Indication: MALIGNANT URINARY TRACT NEOPLASM
     Route: 065

REACTIONS (4)
  - Death [Fatal]
  - Decreased appetite [Unknown]
  - Headache [Unknown]
  - Fatigue [Unknown]
